FAERS Safety Report 6113556-8 (Version None)
Quarter: 2009Q1

REPORT INFORMATION
  Report Type: 
  Country: None (occurrence: None)
  Receive Date: 20090312
  Receipt Date: 20090305
  Transmission Date: 20090719
  Serious: Yes (Other)
  Sender: FDA-Public Use
  Company Number: DE-BAYER-200914569GPV

PATIENT
  Sex: Male
  Weight: 5.2 kg

DRUGS (1)
  1. YASMIN [Suspect]
     Route: 064
     Dates: start: 20080501, end: 20080619

REACTIONS (1)
  - FOETAL MACROSOMIA [None]
